FAERS Safety Report 4444173-3 (Version None)
Quarter: 2004Q3

REPORT INFORMATION
  Report Type: 
  Country: None (occurrence: None)
  Receive Date: 20040902
  Receipt Date: 20040812
  Transmission Date: 20050211
  Serious: Yes (Hospitalization, Other)
  Sender: FDA-Public Use
  Company Number: USA040875342

PATIENT
  Age: 90 Year
  Sex: Female
  Weight: 68 kg

DRUGS (7)
  1. HUMALOG [Suspect]
     Dosage: 10 U/3 DAY
     Dates: start: 20040701
  2. HUMULIN 50/50 [Suspect]
     Dosage: 28 U/1 IN THE EVENING
     Dates: end: 20040701
  3. HUMULIN R [Suspect]
     Dates: end: 20040701
  4. HUMULIN N [Suspect]
     Dosage: 36 U/1 IN THE MORNING
     Dates: end: 20040701
  5. HUMULIN 70/30 [Suspect]
  6. LANTUS [Concomitant]
  7. PLAVIX [Concomitant]

REACTIONS (9)
  - ARTHRALGIA [None]
  - BACK PAIN [None]
  - BLOOD GLUCOSE DECREASED [None]
  - BLOOD GLUCOSE INCREASED [None]
  - BODY HEIGHT DECREASED [None]
  - CARDIOMEGALY [None]
  - CARDIOVASCULAR DISORDER [None]
  - DYSPNOEA [None]
  - RASH [None]
